FAERS Safety Report 6278778-4 (Version None)
Quarter: 2009Q3

REPORT INFORMATION
  Report Type: 
  Country: None (occurrence: None)
  Receive Date: 20090723
  Receipt Date: 20070910
  Transmission Date: 20100115
  Serious: Yes (Hospitalization, Other)
  Sender: FDA-Public Use
  Company Number: US-ASTRAZENECA-2006UW01882

PATIENT
  Age: 564 Month
  Sex: Female
  Weight: 115.7 kg

DRUGS (33)
  1. SEROQUEL [Suspect]
     Indication: BIPOLAR DISORDER
     Route: 048
     Dates: start: 20010817, end: 20021114
  2. SEROQUEL [Suspect]
     Route: 048
     Dates: end: 20030926
  3. RISPERDAL [Suspect]
     Dates: start: 20000503, end: 20010720
  4. RISPERDAL [Suspect]
     Route: 065
     Dates: start: 19960728
  5. ZYPREXA [Suspect]
     Dosage: 10-20 MG
     Dates: start: 19971101, end: 20020101
  6. ZYPREXA [Suspect]
     Dosage: 7.5 TO 10 MG
     Dates: start: 19981003, end: 20000623
  7. ZYPREXA [Suspect]
     Dosage: 7.5 TO 15 MG
     Route: 065
     Dates: start: 19970314
  8. HALDOL [Concomitant]
  9. NAVANE [Concomitant]
     Dates: start: 19970101, end: 19980730
  10. DILTIAZEM [Concomitant]
  11. ENALAPRIL MALEATE [Concomitant]
     Dosage: 5 TO 10 MG
     Route: 065
  12. WELLBUTRIN [Concomitant]
     Dosage: 50 TO 160 MG
     Route: 065
  13. DEPAKOTE [Concomitant]
     Dosage: 500 TO 1000 MG
     Route: 065
  14. LOVASTATIN [Concomitant]
     Route: 065
  15. LORAZEPAM [Concomitant]
     Dosage: 0.5 TO 2 MG
     Route: 065
  16. LORAZEPAM [Concomitant]
     Route: 065
  17. ALBUTEROL [Concomitant]
     Route: 048
  18. PRAVASTATIN [Concomitant]
     Route: 065
  19. ACETYLSALICYLIC ACID [Concomitant]
     Route: 065
  20. ISOSORBIDE MONONITRATE [Concomitant]
     Dosage: 30 MG, 60 MG
     Route: 065
  21. GLYBURIDE [Concomitant]
     Dosage: 2.5 TO 5 MG
     Route: 065
  22. TRIHEXYPHENIDYL [Concomitant]
     Route: 065
  23. PIOGLITAZONE [Concomitant]
     Route: 065
  24. CLONAZEPAM [Concomitant]
     Route: 065
  25. THIOTHIXENE [Concomitant]
     Route: 065
  26. GABAPENTIN [Concomitant]
     Route: 065
  27. VITAMIN E [Concomitant]
     Route: 065
  28. OXYCODONE [Concomitant]
     Route: 065
  29. PREDNISONE TAB [Concomitant]
     Route: 048
  30. TRIAMT [Concomitant]
     Route: 065
  31. BYETTA [Concomitant]
     Route: 065
  32. LAMICTAL [Concomitant]
     Route: 065
  33. TEGRETOL [Concomitant]
     Dosage: 200 TO 3OO MG
     Route: 065

REACTIONS (21)
  - ASTHMA [None]
  - BRONCHIAL HYPERREACTIVITY [None]
  - BRONCHOSPASM [None]
  - CARDIAC FAILURE CONGESTIVE [None]
  - CHRONIC OBSTRUCTIVE PULMONARY DISEASE [None]
  - COUGH [None]
  - DEPRESSED MOOD [None]
  - DYSPNOEA [None]
  - HEADACHE [None]
  - HYPERGLYCAEMIA [None]
  - INJECTION SITE DISCOMFORT [None]
  - INJECTION SITE HAEMATOMA [None]
  - MYOCARDIAL INFARCTION [None]
  - NERVOUSNESS [None]
  - NOCTURIA [None]
  - OBESITY [None]
  - PRESBYOPIA [None]
  - PULMONARY OEDEMA [None]
  - TYPE 2 DIABETES MELLITUS [None]
  - URINARY INCONTINENCE [None]
  - VISION BLURRED [None]
